FAERS Safety Report 9782566 (Version 2)
Quarter: 2013Q4

REPORT INFORMATION
  Report Type: Spontaneous
  Country: IT (occurrence: None)
  Receive Date: 20131220
  Receipt Date: 20131224
  Transmission Date: 20140711
  Serious: Yes (Hospitalization)
  Sender: FDA-Public Use
  Company Number: AUR-APL-2013-10587

PATIENT
  Age: 57 Year
  Sex: Female

DRUGS (1)
  1. METFORMIN (METFORMIN) [Suspect]
     Indication: DIABETES MELLITUS
     Dosage: (450 MG, 1 D)
     Route: 048
     Dates: start: 20120101, end: 20121023

REACTIONS (7)
  - Lactic acidosis [None]
  - Respiratory failure [None]
  - Anuria [None]
  - Resuscitation [None]
  - Dialysis [None]
  - Pulmonary oedema [None]
  - Skin lesion [None]
